FAERS Safety Report 14927047 (Version 1)
Quarter: 2018Q2

REPORT INFORMATION
  Report Type: Spontaneous
  Country: US (occurrence: US)
  Receive Date: 20180523
  Receipt Date: 20180523
  Transmission Date: 20180711
  Serious: Yes (Congenital Anomaly, Other)
  Sender: FDA-Public Use
  Company Number: US-ALKEM LABORATORIES LIMITED-US-ALKEM-2018-03380

PATIENT

DRUGS (1)
  1. MYCOPHENOLATE MOFETIL. [Suspect]
     Active Substance: MYCOPHENOLATE MOFETIL
     Indication: PRODUCT USED FOR UNKNOWN INDICATION
     Dosage: UNK
     Route: 065

REACTIONS (8)
  - Congenital central nervous system anomaly [Unknown]
  - Cleft lip and palate [Unknown]
  - Foetal exposure during pregnancy [Unknown]
  - Micrognathia [Unknown]
  - External auditory canal atresia [Unknown]
  - Hypertelorism of orbit [Unknown]
  - Ectopic kidney [Unknown]
  - Microtia [Unknown]
